FAERS Safety Report 8532549-4 (Version None)
Quarter: 2012Q3

REPORT INFORMATION
  Report Type: 
  Country: None (occurrence: None)
  Receive Date: 20120724
  Receipt Date: 20120719
  Transmission Date: 20120928
  Serious: No
  Sender: FDA-Public Use
  Company Number: US-PFIZER INC-2012175129

PATIENT
  Sex: Male
  Weight: 48.526 kg

DRUGS (4)
  1. GENOTROPIN [Suspect]
     Indication: DWARFISM
     Dosage: UNK, 1X/DAY
     Route: 058
     Dates: start: 20120709
  2. GENOTROPIN [Suspect]
     Indication: GROWTH HORMONE DEFICIENCY
  3. PENTASA [Concomitant]
     Dosage: UNK
  4. MERCAPTOPURINE [Concomitant]
     Indication: CROHN'S DISEASE
     Dosage: UNK

REACTIONS (2)
  - ABDOMINAL DISCOMFORT [None]
  - DIARRHOEA [None]
